FAERS Safety Report 8066766-7 (Version None)
Quarter: 2012Q1

REPORT INFORMATION
  Report Type: 
  Country: None (occurrence: None)
  Receive Date: 20120124
  Receipt Date: 20120116
  Transmission Date: 20120608
  Serious: Yes (Hospitalization)
  Sender: FDA-Public Use
  Company Number: US-BAYER-2011-108028

PATIENT
  Age: 42 Year
  Sex: Female
  Weight: 90.703 kg

DRUGS (8)
  1. YAZ [Suspect]
     Indication: CONTRACEPTION
     Dosage: UNK
     Route: 048
     Dates: start: 20080301, end: 20090801
  2. LEXAPRO [Concomitant]
     Dosage: 10 MG, UNK
     Route: 048
  3. BENADRYL [Concomitant]
  4. WELLBUTRIN XL [Concomitant]
     Dosage: 10 MG, UNK
     Route: 048
  5. PEPCID [Concomitant]
  6. KAPIDEX [Concomitant]
  7. ANALGESICS [Concomitant]
  8. NEXIUM [Concomitant]

REACTIONS (4)
  - INJURY [None]
  - BILIARY DYSKINESIA [None]
  - SPHINCTER OF ODDI DYSFUNCTION [None]
  - GALLBLADDER DISORDER [None]
